FAERS Safety Report 9589678 (Version 1)
Quarter: 2013Q4

REPORT INFORMATION
  Report Type: Spontaneous
  Country: US (occurrence: US)
  Receive Date: 20131003
  Receipt Date: 20131003
  Transmission Date: 20140711
  Serious: No
  Sender: FDA-Public Use
  Company Number: US-AMGEN-USASP2012071534

PATIENT
  Age: 49 Year
  Sex: Female

DRUGS (2)
  1. ENBREL [Suspect]
     Indication: RHEUMATOID ARTHRITIS
     Dosage: 50 MG, QWK
     Dates: start: 20120822, end: 20120905
  2. MTX                                /00113801/ [Concomitant]
     Dosage: 2.5 MG X 8 TABS PER WEEK STARTED MTX 3 YEARS AGO

REACTIONS (1)
  - Pain in extremity [Not Recovered/Not Resolved]
